FAERS Safety Report 21346158 (Version 1)
Quarter: 2022Q3

REPORT INFORMATION
  Report Type: Spontaneous
  Country: BR (occurrence: BR)
  Receive Date: 20220917
  Receipt Date: 20220917
  Transmission Date: 20221027
  Serious: Yes (Other)
  Sender: FDA-Public Use
  Company Number: BR-BoehringerIngelheim-2022-BI-191878

PATIENT
  Age: 40 Year
  Sex: Male

DRUGS (4)
  1. BEROTEC [Suspect]
     Active Substance: FENOTEROL HYDROBROMIDE
     Indication: Asthma
     Dosage: DROPS
     Route: 055
  2. ATROVENT [Suspect]
     Active Substance: IPRATROPIUM BROMIDE
     Indication: Asthma
     Route: 055
  3. PULMICORT TURBUHALER [Suspect]
     Active Substance: BUDESONIDE
     Indication: Asthma
     Route: 055
  4. BECLOMETHASONE DIPROPIONATE [Suspect]
     Active Substance: BECLOMETHASONE DIPROPIONATE
     Indication: Asthma
     Route: 055

REACTIONS (8)
  - Respiratory arrest [Unknown]
  - Tracheomalacia [Unknown]
  - Chronic obstructive pulmonary disease [Unknown]
  - Dyspnoea [Unknown]
  - Infection [Unknown]
  - Drug ineffective [Unknown]
  - Pseudomonas infection [Unknown]
  - Fungal disease carrier [Unknown]

NARRATIVE: CASE EVENT DATE: 20150101
